FAERS Safety Report 10949546 (Version 1)
Quarter: 2015Q1

REPORT INFORMATION
  Report Type: Spontaneous
  Country: US (occurrence: None)
  Receive Date: 20150323
  Receipt Date: 20150323
  Transmission Date: 20150721
  Serious: Yes (Other)
  Sender: FDA-Public Use
  Company Number: None

PATIENT
  Age: 47 Year
  Sex: Female

DRUGS (1)
  1. IBRANCE [Suspect]
     Active Substance: PALBOCICLIB
     Indication: BREAST CANCER FEMALE
     Dosage: 1 CAPSULE ONCE DAILY 21ON, 7OFF BY MOUTH
     Route: 048
     Dates: start: 20150306

REACTIONS (3)
  - Abdominal discomfort [None]
  - Dysgeusia [None]
  - Fatigue [None]

NARRATIVE: CASE EVENT DATE: 20150312
